FAERS Safety Report 4349838-X (Version None)
Quarter: 2004Q2

REPORT INFORMATION
  Report Type: 
  Country: None (occurrence: None)
  Receive Date: 20040426
  Receipt Date: 20040414
  Transmission Date: 20050107
  Serious: No
  Sender: FDA-Public Use
  Company Number: 04H-144-0257885-00

PATIENT
  Age: 66 Year
  Sex: Male

DRUGS (14)
  1. LEUCOVORIN CALCIUM [Suspect]
     Indication: CHEMOTHERAPY
  2. IFOSFAMIDE [Suspect]
     Indication: CHEMOTHERAPY
     Dosage: 800 MG M2 DAY 1-5
     Route: 042
  3. DEXAMETHASONE [Suspect]
     Indication: CHEMOTHERAPY
     Dosage: 10 MG / M2 DAY 1-5
     Route: 042
  4. VINCRISTINE [Suspect]
     Indication: CHEMOTHERAPY
     Dosage: 2 MG / ONCE
     Route: 042
  5. METHOTREXATE [Suspect]
     Indication: CHEMOTHERAPY
     Dosage: 3 G/M **2
     Route: 042
  6. ETOPOSIDE [Suspect]
     Indication: CHEMOTHERAPY
     Dosage: 100 MG MG/M2, DAY4 + 5
     Route: 042
  7. CYTARABINE [Suspect]
     Indication: CHEMOTHERAPY
     Dosage: 150 MG/M2, DAY 4 + 5
     Route: 042
  8. CYCLOPHOSPHAMIDE [Suspect]
     Indication: CHEMOTHERAPY
     Dosage: 200 MG/M2 DAY 1-5
     Route: 042
  9. DOXORUBICIN HCL [Suspect]
     Indication: CHEMOTHERAPY
     Dosage: 25 MG / M2
     Route: 042
  10. PREDNISONE [Concomitant]
  11. CYCLOPHOSPHAMIDE [Concomitant]
  12. METHOTREXATE [Concomitant]
  13. CYTARABINE [Concomitant]
  14. HYDROCORTISONE [Concomitant]

REACTIONS (4)
  - MUCOSAL INFLAMMATION [None]
  - NEUTROPENIA [None]
  - STREPTOCOCCAL BACTERAEMIA [None]
  - THROMBOCYTOPENIA [None]
